FAERS Safety Report 8517130-5 (Version None)
Quarter: 2012Q3

REPORT INFORMATION
  Report Type: 
  Country: None (occurrence: None)
  Receive Date: 20120718
  Receipt Date: 20120706
  Transmission Date: 20120928
  Serious: Yes (Other)
  Sender: FDA-Public Use
  Company Number: IT-BRISTOL-MYERS SQUIBB COMPANY-16752735

PATIENT
  Sex: Male

DRUGS (1)
  1. ABATACEPT [Suspect]
     Dosage: DURATION OF THERAPY: 1 YEAR APPROX.

REACTIONS (1)
  - HEPATITIS [None]
